FAERS Safety Report 8904594 (Version 1)
Quarter: 2012Q4

REPORT INFORMATION
  Report Type: 
  Country: US (occurrence: US)
  Receive Date: 20121109
  Receipt Date: 20121109
  Transmission Date: 20130627
  Serious: No
  Sender: FDA-Public Use
  Company Number: US-BAYER-2012-117428

PATIENT
  Age: 37 Year
  Sex: Female
  Weight: 101.13 kg

DRUGS (4)
  1. ALEVE LIQUID GELS [Suspect]
     Indication: PAIN MENSTRUAL
     Dosage: 2 DF, UNK
     Route: 048
     Dates: start: 20121101
  2. ALEVE CAPLET/TABLET,MIDOL EXTENDED RELIEF CAPLET [Suspect]
     Indication: BACK ACHE
     Dosage: UNK
     Route: 048
     Dates: start: 201210
  3. ANTICONVULSIVE [Concomitant]
  4. ANTI-ASTHMATICS [Concomitant]

REACTIONS (3)
  - Drug ineffective [Not Recovered/Not Resolved]
  - Drug ineffective [None]
  - Overdose [None]
